FAERS Safety Report 13805424 (Version 2)
Quarter: 2018Q1

REPORT INFORMATION
  Report Type: Spontaneous
  Country: US (occurrence: US)
  Receive Date: 20170728
  Receipt Date: 20180124
  Transmission Date: 20180508
  Serious: No
  Sender: FDA-Public Use
  Company Number: US-AMGEN-USASP2017090102

PATIENT
  Age: 68 Year
  Sex: Male

DRUGS (1)
  1. REPATHA [Suspect]
     Active Substance: EVOLOCUMAB
     Indication: PRODUCT USED FOR UNKNOWN INDICATION
     Dosage: 420 MG, QMO
     Route: 065
     Dates: start: 20170415

REACTIONS (4)
  - Skin swelling [Recovering/Resolving]
  - Asthenia [Unknown]
  - Skin discolouration [Recovering/Resolving]
  - Feeling cold [Unknown]

NARRATIVE: CASE EVENT DATE: 20170607
